FAERS Safety Report 7339493-9 (Version None)
Quarter: 2011Q1

REPORT INFORMATION
  Report Type: 
  Country: None (occurrence: None)
  Receive Date: 20110308
  Receipt Date: 20110127
  Transmission Date: 20110831
  Serious: No
  Sender: FDA-Public Use
  Company Number: US-AMGEN-USASP2011005206

PATIENT
  Age: 76 Year
  Sex: Female

DRUGS (13)
  1. PROLIA [Suspect]
     Indication: OSTEOPOROSIS POSTMENOPAUSAL
     Dosage: 60 MG, Q6MO
     Dates: start: 20110124
  2. CYMBALTA [Concomitant]
     Dosage: UNK
  3. LIPITOR [Concomitant]
  4. VITAMIN E                          /00110501/ [Concomitant]
  5. TRICORT                            /00031902/ [Concomitant]
     Dosage: UNK
  6. CALCIUM +VIT D [Concomitant]
  7. MULTI-VITAMINS [Concomitant]
  8. IRON [Concomitant]
  9. NEXIUM [Concomitant]
     Dosage: UNK
  10. DIOVAN [Concomitant]
     Dosage: UNK MG, UNK
  11. VITAMIN C                          /00008001/ [Concomitant]
  12. VITAMIN A [Concomitant]
  13. ASPIRIN [Concomitant]

REACTIONS (3)
  - PAIN IN EXTREMITY [None]
  - ARTHRALGIA [None]
  - BACK PAIN [None]
